FAERS Safety Report 5330506-2 (Version None)
Quarter: 2007Q2

REPORT INFORMATION
  Report Type: 
  Country: None (occurrence: None)
  Receive Date: 20070517
  Receipt Date: 20070511
  Transmission Date: 20071010
  Serious: Yes (Life-Threatening, Hospitalization)
  Sender: FDA-Public Use
  Company Number: 2007-158573-NL

PATIENT
  Age: 3 Year
  Sex: Female

DRUGS (4)
  1. VECURONIUM BROMIDE [Suspect]
     Indication: INTUBATION
     Dosage: 1.5 MG ONCE INTRAVENOUS (NOS)
     Route: 042
     Dates: start: 20070427, end: 20070427
  2. ALFENTANYL HYDROCHLORIDE [Suspect]
     Indication: ANALGESIC EFFECT
     Dosage: 1.75 MG PRN INTRAVENOUS (NOS)
     Route: 042
     Dates: start: 20070427, end: 20070427
  3. PROPOFOL [Suspect]
     Indication: ANAESTHESIA
     Dosage: 53 MG PRN INTRAVENOUS (NOS)
     Route: 042
     Dates: start: 20070427, end: 20070427
  4. SALIDEX [Concomitant]

REACTIONS (3)
  - AIRWAY COMPLICATION OF ANAESTHESIA [None]
  - BRONCHOSPASM [None]
  - HYPERSENSITIVITY [None]
